FAERS Safety Report 7555339 (Version 2)
Quarter: 2012Q4

REPORT INFORMATION
  Report Type: Report from Study
  Country: US (occurrence: US)
  Receive Date: 20100826
  Receipt Date: 20121114
  Transmission Date: 20130627
  Serious: Yes (Hospitalization)
  Sender: FDA-Public Use
  Company Number: US-ABBOTT-10P-163-0664340-00

PATIENT
  Age: 26 Year
  Sex: Male
  Weight: 74 kg

DRUGS (2)
  1. HUMIRA 40 MG/0.8 ML PEN [Suspect]
     Indication: CROHN^S DISEASE
  2. B12 [Concomitant]
     Indication: PRODUCT USED FOR UNKNOWN INDICATION
     Dosage: 1 injection/month

REACTIONS (3)
  - Colonic stenosis [Recovered/Resolved]
  - Hypophagia [Recovered/Resolved]
  - Abdominal pain [Recovered/Resolved]
